APPROVED DRUG PRODUCT: RANITIDINE HYDROCHLORIDE
Active Ingredient: RANITIDINE HYDROCHLORIDE
Strength: EQ 150MG BASE
Dosage Form/Route: CAPSULE;ORAL
Application: A210681 | Product #001
Applicant: NOVITIUM PHARMA LLC
Approved: Nov 23, 2018 | RLD: No | RS: No | Type: DISCN